FAERS Safety Report 21520519 (Version 1)
Quarter: 2022Q4

REPORT INFORMATION
  Report Type: Spontaneous
  Country: US (occurrence: US)
  Receive Date: 20221028
  Receipt Date: 20221028
  Transmission Date: 20230113
  Serious: Yes (Life-Threatening)
  Sender: FDA-Public Use
  Company Number: US-NOVARTISPH-NVSC2022US242952

PATIENT
  Age: 53 Year
  Sex: Male

DRUGS (4)
  1. OXALIPLATIN [Suspect]
     Active Substance: OXALIPLATIN
     Indication: Pancreatic carcinoma
     Dosage: UNK (PRE-OPERATIVE ADJUVANT FOLFIRINOX )
     Route: 065
  2. LEUCOVORIN [Suspect]
     Active Substance: LEUCOVORIN
     Indication: Pancreatic carcinoma
     Dosage: UNK (PRE-OPERATIVE ADJUVANT FOLFIRINOX )
     Route: 065
  3. FLUOROURACIL [Suspect]
     Active Substance: FLUOROURACIL
     Indication: Pancreatic carcinoma
     Dosage: UNK (PRE-OPERATIVE ADJUVANT FOLFIRINOX )
     Route: 065
  4. IRINOTECAN HYDROCHLORIDE [Suspect]
     Active Substance: IRINOTECAN HYDROCHLORIDE
     Indication: Pancreatic carcinoma
     Dosage: UNK (PRE-OPERATIVE ADJUVANT FOLFIRINOX )
     Route: 065

REACTIONS (4)
  - Diarrhoea [Unknown]
  - Pneumatosis [Unknown]
  - Colitis [Unknown]
  - Product use in unapproved indication [Unknown]
